FAERS Safety Report 22060856 (Version 1)
Quarter: 2023Q1

REPORT INFORMATION
  Report Type: Report from Study
  Country: BR (occurrence: None)
  Receive Date: 20230303
  Receipt Date: 20230303
  Transmission Date: 20230418
  Serious: Yes (Other)
  Sender: FDA-Public Use
  Company Number: BR-Merck Healthcare KGaA-9386516

PATIENT
  Age: 31 Year
  Sex: Male

DRUGS (2)
  1. INTERFERON BETA-1A [Suspect]
     Active Substance: INTERFERON BETA-1A
     Indication: Multiple sclerosis
     Dosage: THERAPY START DATE: 15-JUN-2019
     Route: 058
  2. REBIF [Suspect]
     Active Substance: INTERFERON BETA-1A
     Indication: Multiple sclerosis
     Dates: start: 20160714, end: 20190614

REACTIONS (4)
  - Appendicectomy [Unknown]
  - Injection site pain [Unknown]
  - Sensitive skin [Unknown]
  - Lack of administration site rotation [Not Recovered/Not Resolved]

NARRATIVE: CASE EVENT DATE: 20170101
